FAERS Safety Report 22654730 (Version 1)
Quarter: 2023Q2

REPORT INFORMATION
  Report Type: Spontaneous
  Country: US (occurrence: CA)
  Receive Date: 20230629
  Receipt Date: 20230629
  Transmission Date: 20230722
  Serious: Yes (Other)
  Sender: FDA-Public Use
  Company Number: US-BAYER-2023A086912

PATIENT
  Age: 60 Year
  Sex: Female
  Weight: 60 kg

DRUGS (8)
  1. CIPROFLOXACIN [Suspect]
     Active Substance: CIPROFLOXACIN
     Indication: Product used for unknown indication
  2. VITAMINS NOS [Suspect]
     Active Substance: VITAMINS
     Indication: Product used for unknown indication
  3. AZATHIOPRINE [Suspect]
     Active Substance: AZATHIOPRINE
     Indication: Colitis ulcerative
     Dosage: 50 MG, QD
     Route: 048
  4. LEVOTHYROXINE [Suspect]
     Active Substance: LEVOTHYROXINE
     Indication: Product used for unknown indication
     Dosage: .1 MG, QD
     Route: 048
  5. BUTYLSCOPOLAMINE BROMIDE [Suspect]
     Active Substance: BUTYLSCOPOLAMINE BROMIDE
     Indication: Pain
     Route: 048
  6. PREDNISONE [Suspect]
     Active Substance: PREDNISONE
     Indication: Product used for unknown indication
     Dosage: 20 MG, QD
     Route: 048
  7. SYNTHROID [Suspect]
     Active Substance: LEVOTHYROXINE SODIUM
     Indication: Product used for unknown indication
  8. METRONIDAZOLE BENZOATE [Suspect]
     Active Substance: METRONIDAZOLE BENZOATE
     Indication: Product used for unknown indication

REACTIONS (5)
  - Lymphopenia [Not Recovered/Not Resolved]
  - Pyrexia [None]
  - Nausea [None]
  - Vomiting [None]
  - Drug ineffective [None]
